FAERS Safety Report 17149158 (Version 1)
Quarter: 2019Q4

REPORT INFORMATION
  Report Type: Spontaneous
  Country: FR (occurrence: FR)
  Receive Date: 20191213
  Receipt Date: 20191213
  Transmission Date: 20200122
  Serious: Yes (Hospitalization)
  Sender: FDA-Public Use
  Company Number: FR-TEVA-2019-FR-1150194

PATIENT
  Age: 72 Year
  Sex: Female
  Weight: 44.1 kg

DRUGS (1)
  1. SOTALOL (CHLORHYDRATE DE) [Suspect]
     Active Substance: SOTALOL
     Indication: HYPERTENSION
     Dosage: 80 MG
     Route: 048
     Dates: end: 20191021

REACTIONS (2)
  - Hypoglycaemia [Recovered/Resolved]
  - Hyperhidrosis [Recovered/Resolved]

NARRATIVE: CASE EVENT DATE: 20191020
